FAERS Safety Report 11750994 (Version 2)
Quarter: 2016Q1

REPORT INFORMATION
  Report Type: Spontaneous
  Country: US (occurrence: US)
  Receive Date: 20151118
  Receipt Date: 20160222
  Transmission Date: 20160525
  Serious: Yes (Other)
  Sender: FDA-Public Use
  Company Number: US-BAYER-2015-413506

PATIENT
  Sex: Female

DRUGS (1)
  1. MIRENA [Suspect]
     Active Substance: LEVONORGESTREL
     Dosage: UNK

REACTIONS (63)
  - Autoimmune thyroiditis [Unknown]
  - Dyspareunia [Unknown]
  - Hypertension [Unknown]
  - Sleep paralysis [Unknown]
  - Temperature intolerance [Unknown]
  - Fatigue [Unknown]
  - Vision blurred [Unknown]
  - Poor peripheral circulation [Unknown]
  - Syncope [Unknown]
  - Anxiety [Unknown]
  - Neuromyopathy [Unknown]
  - Rheumatoid arthritis [Unknown]
  - Hypothalamo-pituitary disorder [Unknown]
  - Dry eye [Unknown]
  - Eye pruritus [Unknown]
  - Pelvic pain [Unknown]
  - Alopecia [Unknown]
  - Feeling abnormal [Unknown]
  - Arthralgia [Unknown]
  - Myalgia [Unknown]
  - Headache [Unknown]
  - Hypoaesthesia [Unknown]
  - Inflammation [Unknown]
  - Disturbance in attention [Unknown]
  - Memory impairment [Unknown]
  - Dizziness [Unknown]
  - Urinary tract infection [Unknown]
  - Depression [Unknown]
  - Dysmenorrhoea [Unknown]
  - Menorrhagia [Unknown]
  - Blood cholesterol increased [Unknown]
  - Fatigue [None]
  - Somnolence [Unknown]
  - Insulin resistance [Unknown]
  - Gluten sensitivity [Unknown]
  - Pain [Unknown]
  - Polymenorrhoea [Unknown]
  - Menstruation irregular [Unknown]
  - Hypersensitivity [Unknown]
  - Lethargy [Unknown]
  - Insomnia [Unknown]
  - Acne cystic [Unknown]
  - Abdominal distension [Unknown]
  - Headache [None]
  - Urinary tract infection [None]
  - Confusional state [Unknown]
  - Dyspepsia [Unknown]
  - Alexia [Unknown]
  - Middle insomnia [Unknown]
  - Anger [Unknown]
  - Premenstrual syndrome [Unknown]
  - Acne [Unknown]
  - Nail disorder [Unknown]
  - Joint swelling [Unknown]
  - Food allergy [Unknown]
  - Weight increased [Unknown]
  - Mood swings [Unknown]
  - Abdominal distension [None]
  - Mood swings [None]
  - Muscular weakness [Unknown]
  - Loss of libido [Unknown]
  - Menorrhagia [Unknown]
  - Abdominal pain [Unknown]

NARRATIVE: CASE EVENT DATE: 2005
